FAERS Safety Report 17389831 (Version 1)
Quarter: 2020Q1

REPORT INFORMATION
  Report Type: Spontaneous
  Country: US (occurrence: US)
  Receive Date: 20200123
  Receipt Date: 20200123
  Transmission Date: 20200409
  Serious: Yes (Hospitalization)
  Sender: FDA-Public Use
  Company Number: None

PATIENT
  Age: 3 Year
  Sex: Female
  Weight: 18.8 kg

DRUGS (5)
  1. METHOTREXATE. [Suspect]
     Active Substance: METHOTREXATE
     Dates: end: 20191230
  2. VINCRISTINE SULFATE. [Suspect]
     Active Substance: VINCRISTINE SULFATE
     Dates: end: 20191223
  3. ONCASPAR [Suspect]
     Active Substance: PEGASPARGASE
     Dates: end: 20191205
  4. DEXAMETHASONE. [Suspect]
     Active Substance: DEXAMETHASONE
     Dates: end: 20191229
  5. CYTARABINE. [Suspect]
     Active Substance: CYTARABINE
     Dates: end: 20191130

REACTIONS (2)
  - Intracardiac thrombus [None]
  - Cardiac arrest [None]

NARRATIVE: CASE EVENT DATE: 20191230
